FAERS Safety Report 6026259-5 (Version None)
Quarter: 2008Q4

REPORT INFORMATION
  Report Type: 
  Country: None (occurrence: None)
  Receive Date: 20081230
  Receipt Date: 20081218
  Transmission Date: 20090506
  Serious: Yes (Death, Life-Threatening)
  Sender: FDA-Public Use
  Company Number: 004974

PATIENT
  Age: 44 Year
  Sex: Female

DRUGS (7)
  1. BUSULFEX [Suspect]
     Indication: STEM CELL TRANSPLANT
     Dosage: 30 MG, QID
     Route: 042
     Dates: start: 20070531, end: 20070601
  2. DEPAKENE [Concomitant]
  3. CYCLOPHOSPHAMIDE [Concomitant]
  4. METHOTREXATE [Concomitant]
  5. TACROLIMUS [Concomitant]
  6. METHYLPREDNISOLONE 16MG TAB [Concomitant]
  7. CELLCEPT USA (MYCOPHENOLATE MOFETIL) [Concomitant]

REACTIONS (4)
  - BLOOD UREA INCREASED [None]
  - JAUNDICE [None]
  - SEPSIS [None]
  - STOMATITIS [None]
